FAERS Safety Report 9655707 (Version 2)
Quarter: 2013Q4

REPORT INFORMATION
  Report Type: Spontaneous
  Country: US (occurrence: US)
  Receive Date: 20131030
  Receipt Date: 20131104
  Transmission Date: 20140711
  Serious: No
  Sender: FDA-Public Use
  Company Number: US-BIOGENIDEC-2013BI101510

PATIENT
  Age: 45 Year
  Sex: Male

DRUGS (4)
  1. TYSABRI [Suspect]
     Indication: MULTIPLE SCLEROSIS
     Route: 042
     Dates: start: 20121126
  2. XANAFLEX [Concomitant]
  3. HYDROCODONE [Concomitant]
  4. BACLOFEN [Concomitant]

REACTIONS (1)
  - Multiple sclerosis relapse [Recovered/Resolved]
